FAERS Safety Report 10345219 (Version 1)
Quarter: 2014Q3

REPORT INFORMATION
  Report Type: Spontaneous
  Country: CH (occurrence: CH)
  Receive Date: 20140728
  Receipt Date: 20140728
  Transmission Date: 20150326
  Serious: Yes (Life-Threatening, Hospitalization)
  Sender: FDA-Public Use
  Company Number: CH-PFIZER INC-2014204898

PATIENT
  Age: 78 Year
  Sex: Male
  Weight: 71 kg

DRUGS (14)
  1. TOREM [Suspect]
     Active Substance: TORSEMIDE
     Dosage: 5 MG, 2X/DAY
     Route: 048
     Dates: end: 20140706
  2. CO AMOXICILLIN [Concomitant]
     Active Substance: AMOXICILLIN
     Indication: PROSTATITIS
     Dosage: 1 DF, SINGLE
     Dates: start: 20140701, end: 20140701
  3. ASPIRIN CARDIO [Concomitant]
     Active Substance: ASPIRIN
     Indication: CORONARY ARTERY DISEASE
     Dosage: 100 MG, 1X/DAY
  4. SYMBICORT [Concomitant]
     Active Substance: BUDESONIDE\FORMOTEROL FUMARATE DIHYDRATE
     Dosage: 1 GTT, 2X/DAY
     Route: 055
  5. ACIDUM FOLICUM STREULI [Concomitant]
     Dosage: 5 MG, 1X/DAY
     Route: 048
  6. BACTRIM [Suspect]
     Active Substance: SULFAMETHOXAZOLE\TRIMETHOPRIM
     Indication: CYSTOSCOPY
     Dosage: 1 DF (800 MG/160 MG), 2X/DAY
     Route: 048
     Dates: start: 20140626, end: 20140701
  7. LANTUS [Concomitant]
     Active Substance: INSULIN GLARGINE
     Indication: INSULIN-REQUIRING TYPE 2 DIABETES MELLITUS
     Dosage: 6 IU, 1X/DAY
     Route: 058
  8. NEXIUM [Suspect]
     Active Substance: ESOMEPRAZOLE MAGNESIUM
     Dosage: 20 MG, 1X/DAY
     Route: 048
     Dates: end: 20140706
  9. METO ZEROK [Suspect]
     Active Substance: METOPROLOL SUCCINATE
     Indication: CORONARY ARTERY DISEASE
     Dosage: 100 MG, 1X/DAY
     Route: 048
     Dates: end: 20140706
  10. ALDACTONE [Suspect]
     Active Substance: SPIRONOLACTONE
     Dosage: 25 MG, 1X/DAY
     Route: 048
     Dates: end: 20140706
  11. PRAVALOTIN MEPHA [Suspect]
     Active Substance: PRAVASTATIN SODIUM
     Indication: CORONARY ARTERY DISEASE
     Dosage: 40 MG, 1X/DAY
     Route: 048
     Dates: end: 20140706
  12. MEPHANOL [Suspect]
     Active Substance: ALLOPURINOL
     Indication: GOUT
     Dosage: 100 MG, 1X/DAY
     Route: 048
     Dates: end: 20140706
  13. ALFUZOSIN [Suspect]
     Active Substance: ALFUZOSIN
     Indication: PROSTATE CANCER
     Dosage: 10 MG, 1X/DAY
     Route: 048
     Dates: end: 20140706
  14. LISITRIL [Suspect]
     Active Substance: LISINOPRIL
     Indication: CORONARY ARTERY DISEASE
     Dosage: 5 MG, 1X/DAY
     Route: 048
     Dates: end: 20140706

REACTIONS (6)
  - Sepsis [Unknown]
  - Stevens-Johnson syndrome [Recovering/Resolving]
  - Hypophosphataemia [None]
  - Acute myocardial infarction [Unknown]
  - Bacterial infection [None]
  - Haematuria [Unknown]

NARRATIVE: CASE EVENT DATE: 20140701
